FAERS Safety Report 4984726-7 (Version None)
Quarter: 2006Q2

REPORT INFORMATION
  Report Type: 
  Country: None (occurrence: None)
  Receive Date: 20060427
  Receipt Date: 20051206
  Transmission Date: 20061013
  Serious: Yes (Death)
  Sender: FDA-Public Use
  Company Number: US-MERCK-0512USA01084

PATIENT
  Age: 60 Year
  Sex: Female
  Weight: 77 kg

DRUGS (9)
  1. TRICOR [Concomitant]
     Route: 065
  2. METHOTREXATE [Concomitant]
     Route: 065
  3. FLEXERIL [Concomitant]
     Route: 065
  4. ENBREL [Concomitant]
     Route: 065
  5. ASPIRIN [Concomitant]
     Route: 065
  6. VIOXX [Suspect]
     Indication: RHEUMATOID ARTHRITIS
     Route: 048
     Dates: start: 20010901, end: 20030821
  7. PREVACID [Concomitant]
     Route: 065
  8. LOPRESSOR [Concomitant]
     Route: 065
  9. NORVASC [Concomitant]
     Route: 065

REACTIONS (3)
  - GASTROOESOPHAGEAL REFLUX DISEASE [None]
  - HYPERTROPHIC CARDIOMYOPATHY [None]
  - PULMONARY EMBOLISM [None]
